FAERS Safety Report 24412323 (Version 1)
Quarter: 2024Q4

REPORT INFORMATION
  Report Type: Report from Study
  Country: AU (occurrence: AU)
  Receive Date: 20241008
  Receipt Date: 20241008
  Transmission Date: 20250115
  Serious: Yes (Hospitalization)
  Sender: ABBVIE
  Company Number: AU-ABBVIE-5948006

PATIENT
  Sex: Male

DRUGS (2)
  1. CARBIDOPA\LEVODOPA [Suspect]
     Active Substance: CARBIDOPA\LEVODOPA
     Indication: Parkinson^s disease
     Route: 050
  2. CARBIDOPA\LEVODOPA [Suspect]
     Active Substance: CARBIDOPA\LEVODOPA

REACTIONS (12)
  - Fall [Unknown]
  - Device dislocation [Unknown]
  - Mobility decreased [Unknown]
  - Embedded device [Unknown]
  - Dyskinesia [Unknown]
  - Dysarthria [Unknown]
  - Dysphonia [Unknown]
  - Illusion [Unknown]
  - Electroencephalogram abnormal [Unknown]
  - Orthostatic hypotension [Unknown]
  - Hypertension [Unknown]
  - On and off phenomenon [Unknown]

NARRATIVE: CASE EVENT DATE: 20240101
